FAERS Safety Report 25989512 (Version 1)
Quarter: 2025Q4

REPORT INFORMATION
  Report Type: Spontaneous
  Country: US (occurrence: None)
  Receive Date: 20251031
  Receipt Date: 20251031
  Transmission Date: 20260118
  Serious: Yes (Other)
  Sender: FDA-CTU
  Company Number: None

PATIENT
  Age: 57 Year
  Sex: Male
  Weight: 108 kg

DRUGS (1)
  1. VILAZODONE [Suspect]
     Active Substance: VILAZODONE
     Dosage: FREQUENCY : DAILY;?
     Route: 048
     Dates: start: 20251023, end: 20251025

REACTIONS (1)
  - Dermatitis acneiform [None]

NARRATIVE: CASE EVENT DATE: 20251024
